FAERS Safety Report 25378673 (Version 1)
Quarter: 2025Q2

REPORT INFORMATION
  Report Type: Spontaneous
  Country: US (occurrence: None)
  Receive Date: 20250529
  Receipt Date: 20250529
  Transmission Date: 20250716
  Serious: Yes (Hospitalization)
  Sender: FDA-CTU
  Company Number: None

PATIENT
  Age: 6 Month
  Sex: Male

DRUGS (1)
  1. SILDENAFIL [Suspect]
     Active Substance: SILDENAFIL
     Indication: Pulmonary vascular disorder
     Dosage: FREQUENCY : 3 TIMES A DAY;?

REACTIONS (1)
  - Oxygen saturation decreased [None]

NARRATIVE: CASE EVENT DATE: 20250522
